FAERS Safety Report 5924149-7 (Version None)
Quarter: 2008Q4

REPORT INFORMATION
  Report Type: 
  Country: None (occurrence: None)
  Receive Date: 20081015
  Receipt Date: 20081001
  Transmission Date: 20090506
  Serious: Yes (Disabling)
  Sender: FDA-Public Use
  Company Number: 2008-183378-NL

PATIENT
  Age: 73 Year
  Sex: Male

DRUGS (10)
  1. ROCURONIUM BROMIDE [Suspect]
     Indication: HYPOTONIA
     Dosage: 40 MG, ONCE; INTRAVENOUS
     Route: 042
     Dates: start: 20080907, end: 20080907
  2. THIAMYLAL SODIUM [Suspect]
     Indication: ANAESTHESIA PROCEDURE
     Dosage: INTRAVENOUS (NOS)
     Route: 042
     Dates: end: 20080907
  3. FENTANYL CITRATE [Suspect]
     Indication: ANAESTHESIA PROCEDURE
     Dosage: INTRAVENOUS (NOS)
     Route: 042
     Dates: end: 20080908
  4. DROPERIDOL [Suspect]
     Indication: ANAESTHESIA PROCEDURE
     Dosage: INTRAVENOUS (NOS)
     Route: 042
     Dates: end: 20080907
  5. REMIFENTANIL HYDROCHLORIDE [Suspect]
     Indication: ANAESTHESIA PROCEDURE
     Dosage: INTRAVENOUS (NOS)
     Route: 042
     Dates: end: 20080907
  6. PIMOZIDE [Concomitant]
  7. BIPERIDEN HYDROCHLORIDE TAB [Concomitant]
  8. LORAZEPAM [Concomitant]
  9. BROTIZOLAM [Concomitant]
  10. SODIUM PICOSULFATE [Concomitant]

REACTIONS (2)
  - RESPIRATORY DISORDER [None]
  - RHABDOMYOLYSIS [None]
